FAERS Safety Report 22530993 (Version 1)
Quarter: 2023Q2

REPORT INFORMATION
  Report Type: Spontaneous
  Country: ID (occurrence: ID)
  Receive Date: 20230607
  Receipt Date: 20230607
  Transmission Date: 20230721
  Serious: Yes (Other)
  Sender: FDA-Public Use
  Company Number: ID-SUN PHARMACEUTICAL INDUSTRIES LTD-2023RR-392710

PATIENT
  Age: 35 Year
  Sex: Female

DRUGS (12)
  1. MEROPENEM [Suspect]
     Active Substance: MEROPENEM
     Indication: Sepsis
     Dosage: 2 GRAM, TID
     Route: 065
  2. MEROPENEM [Suspect]
     Active Substance: MEROPENEM
     Indication: Acute respiratory distress syndrome
  3. MEROPENEM [Suspect]
     Active Substance: MEROPENEM
     Indication: Pneumonia
  4. DEXAMETHASONE [Suspect]
     Active Substance: DEXAMETHASONE
     Indication: Sepsis
     Dosage: 6 MILLIGRAM, BID
     Route: 065
  5. DEXAMETHASONE [Suspect]
     Active Substance: DEXAMETHASONE
     Indication: Acute respiratory distress syndrome
  6. ISONIAZID [Suspect]
     Active Substance: ISONIAZID
     Indication: Sepsis
     Dosage: 400 MILLIGRAM, QD
     Route: 065
  7. ISONIAZID [Suspect]
     Active Substance: ISONIAZID
     Indication: Acute respiratory distress syndrome
  8. ISONIAZID [Suspect]
     Active Substance: ISONIAZID
     Indication: Pneumonia
  9. RIFAMPIN [Suspect]
     Active Substance: RIFAMPIN
     Indication: Sepsis
     Dosage: 600 MILLIGRAM, QD
     Route: 065
  10. RIFAMPIN [Suspect]
     Active Substance: RIFAMPIN
     Indication: Acute respiratory distress syndrome
  11. ETHAMBUTOL [Suspect]
     Active Substance: ETHAMBUTOL HYDROCHLORIDE
     Indication: Sepsis
     Dosage: 1000 MILLIGRAM, QD
     Route: 065
  12. ETHAMBUTOL [Suspect]
     Active Substance: ETHAMBUTOL HYDROCHLORIDE
     Indication: Acute respiratory distress syndrome

REACTIONS (2)
  - Drug ineffective [Unknown]
  - Exposure during pregnancy [Unknown]
